FAERS Safety Report 6296124-7 (Version None)
Quarter: 2009Q3

REPORT INFORMATION
  Report Type: 
  Country: None (occurrence: None)
  Receive Date: 20090804
  Receipt Date: 20090729
  Transmission Date: 20100115
  Serious: Yes (Hospitalization)
  Sender: FDA-Public Use
  Company Number: KR-BAYER-200925933GPV

PATIENT
  Age: 59 Year
  Sex: Male
  Weight: 58 kg

DRUGS (30)
  1. SORAFENIB [Suspect]
     Indication: HEPATIC NEOPLASM MALIGNANT
     Dosage: TOTAL DAILY DOSE: 400 MG
     Route: 048
     Dates: start: 20090528
  2. CALCIUM CHLORIDE ANHYDROUS [Concomitant]
     Dates: start: 20090611, end: 20090611
  3. HEPA MERZ [Concomitant]
     Dates: start: 20090601, end: 20090612
  4. TAZOPERAN [Concomitant]
     Dates: start: 20090602, end: 20090612
  5. GASMOTIN [Concomitant]
     Dates: start: 20090603, end: 20090613
  6. PANCRON [Concomitant]
     Dates: start: 20090605, end: 20090613
  7. CURAN [Concomitant]
     Dates: start: 20090601, end: 20090613
  8. COMBIFLEX [Concomitant]
     Dates: start: 20090604, end: 20090612
  9. FURTMAN [Concomitant]
     Dates: start: 20090604, end: 20090612
  10. HEPARIN [Concomitant]
     Dates: start: 20090604, end: 20090612
  11. M.V.I. [Concomitant]
     Dates: start: 20090604, end: 20090612
  12. GODEX [Concomitant]
     Dates: start: 20090517
  13. URSA [Concomitant]
     Dates: start: 20090517
  14. APETROL [Concomitant]
     Dates: start: 20090522
  15. PAXIL CR [Concomitant]
     Dates: start: 20090523
  16. DURAGESIC-100 [Concomitant]
     Dates: start: 20090526
  17. NORVASC [Concomitant]
     Dates: start: 20090531
  18. BARACLUDE [Concomitant]
     Dates: start: 20090529
  19. LIVACT [Concomitant]
     Dates: start: 20090603
  20. ALDACTONE [Concomitant]
     Dates: start: 20090606
  21. GANATON [Concomitant]
     Dates: start: 20090605
  22. LASIX [Concomitant]
     Dates: start: 20090606
  23. IR CODON [Concomitant]
     Dates: start: 20090615
  24. ALBUMIN (HUMAN) [Concomitant]
     Dates: start: 20090619, end: 20090619
  25. PAMISOL [Concomitant]
     Dates: start: 20090619, end: 20090619
  26. PHENIRAMINE [Concomitant]
     Dates: start: 20090619, end: 20090624
  27. MEDILAC-S [Concomitant]
     Dates: start: 20090619
  28. TIROPA [Concomitant]
     Dates: start: 20090619
  29. ESPERSON [Concomitant]
     Dates: start: 20090619
  30. LOPERAMIDE HYDROCHLORIDE [Concomitant]
     Dates: start: 20090619, end: 20090625

REACTIONS (1)
  - ASCITES [None]
